FAERS Safety Report 5856351-7 (Version None)
Quarter: 2008Q3

REPORT INFORMATION
  Report Type: 
  Country: None (occurrence: None)
  Receive Date: 20080821
  Receipt Date: 20080814
  Transmission Date: 20090109
  Serious: Yes (Other)
  Sender: FDA-Public Use
  Company Number: 2008SP016609

PATIENT
  Age: 32 Year
  Sex: Male

DRUGS (2)
  1. RIBAVIRN (S-P) (RIBAVIRIN) [Suspect]
     Indication: HEPATITIS C
     Dosage: 800 MG; QD; PO
     Route: 048
  2. PEGINTERFERON ALFA 2A (NO PREF. NAME) [Suspect]
     Indication: HEPATITIS C
     Dosage: 180 MCG; QW; SC
     Route: 058

REACTIONS (19)
  - ABNORMAL BEHAVIOUR [None]
  - AFFECTIVE DISORDER [None]
  - ANOREXIA [None]
  - ANXIETY [None]
  - ASTHENIA [None]
  - BIPOLAR DISORDER [None]
  - DECREASED INTEREST [None]
  - DEPRESSION [None]
  - DISTURBANCE IN ATTENTION [None]
  - EUPHORIC MOOD [None]
  - FEELING GUILTY [None]
  - INSOMNIA [None]
  - IRRITABILITY [None]
  - LOGORRHOEA [None]
  - MANIA [None]
  - MENTAL IMPAIRMENT [None]
  - PSYCHOMOTOR HYPERACTIVITY [None]
  - RESTLESSNESS [None]
  - WEIGHT DECREASED [None]
